FAERS Safety Report 20855167 (Version 5)
Quarter: 2022Q3

REPORT INFORMATION
  Report Type: Spontaneous
  Country: LT (occurrence: None)
  Receive Date: 20220520
  Receipt Date: 20220724
  Transmission Date: 20221027
  Serious: Yes (Hospitalization, Other)
  Sender: FDA-Public Use
  Company Number: 2022A184087

PATIENT
  Age: 50 Year
  Sex: Female
  Weight: 50 kg

DRUGS (17)
  1. QUETIAPINE [Interacting]
     Active Substance: QUETIAPINE
     Indication: Suicide attempt
     Dosage: 7 TABLETS1400.0MG UNKNOWN
     Route: 065
     Dates: start: 20220422, end: 20220422
  2. QUETIAPINE [Interacting]
     Active Substance: QUETIAPINE
     Indication: Product used for unknown indication
     Dosage: 7 TABLETS1400.0MG UNKNOWN
     Route: 065
     Dates: start: 20220422, end: 20220422
  3. METOPROLOL [Interacting]
     Active Substance: METOPROLOL
     Indication: Suicide attempt
     Dosage: 4 UNITS380.0MG UNKNOWN
     Route: 048
     Dates: start: 20220422, end: 20220422
  4. METOPROLOL [Interacting]
     Active Substance: METOPROLOL
     Indication: Product used for unknown indication
     Dosage: 4 UNITS380.0MG UNKNOWN
     Route: 048
     Dates: start: 20220422, end: 20220422
  5. BISACODYL [Interacting]
     Active Substance: BISACODYL
     Indication: Suicide attempt
     Dosage: 15 UNITS75.0MG UNKNOWN
     Route: 065
     Dates: start: 20220422, end: 20220422
  6. BISACODYL [Interacting]
     Active Substance: BISACODYL
     Indication: Product used for unknown indication
     Dosage: 15 UNITS75.0MG UNKNOWN
     Route: 065
     Dates: start: 20220422, end: 20220422
  7. PREGABALIN [Interacting]
     Active Substance: PREGABALIN
     Indication: Suicide attempt
     Dosage: 9 UNITS675.0MG UNKNOWN
     Route: 065
     Dates: start: 20220422, end: 20220422
  8. PREGABALIN [Interacting]
     Active Substance: PREGABALIN
     Indication: Product used for unknown indication
     Dosage: 9 UNITS675.0MG UNKNOWN
     Route: 065
     Dates: start: 20220422, end: 20220422
  9. CLONAZEPAM [Interacting]
     Active Substance: CLONAZEPAM
     Indication: Suicide attempt
     Dosage: 10 UNITS20.0MG UNKNOWN
     Route: 065
     Dates: start: 20220422, end: 20220422
  10. CLONAZEPAM [Interacting]
     Active Substance: CLONAZEPAM
     Indication: Product used for unknown indication
     Dosage: 10 UNITS20.0MG UNKNOWN
     Route: 065
     Dates: start: 20220422, end: 20220422
  11. ALCOHOL [Interacting]
     Active Substance: ALCOHOL
     Indication: Suicide attempt
     Dosage: UNKNOWN AMOUNT
     Route: 048
     Dates: start: 20220422, end: 20220422
  12. ALCOHOL [Interacting]
     Active Substance: ALCOHOL
     Indication: Product used for unknown indication
     Dosage: UNKNOWN AMOUNT
     Route: 048
     Dates: start: 20220422, end: 20220422
  13. DIAZEPAM [Interacting]
     Active Substance: DIAZEPAM
     Indication: Insomnia
     Dosage: 27 TABLETS135.0MG ONCE/SINGLE ADMINISTRATION
     Route: 048
     Dates: start: 20220422, end: 20220422
  14. DIAZEPAM [Interacting]
     Active Substance: DIAZEPAM
     Indication: Anxiety
     Dosage: 27 TABLETS135.0MG ONCE/SINGLE ADMINISTRATION
     Route: 048
     Dates: start: 20220422, end: 20220422
  15. DIAZEPAM [Interacting]
     Active Substance: DIAZEPAM
     Indication: Suicide attempt
     Dosage: 27 TABLETS135.0MG ONCE/SINGLE ADMINISTRATION
     Route: 048
     Dates: start: 20220422, end: 20220422
  16. ITOPRIDE HYDROCHLORIDE [Interacting]
     Active Substance: ITOPRIDE HYDROCHLORIDE
     Indication: Suicide attempt
     Dosage: 3 UNITS150.0MG UNKNOWN
     Route: 065
     Dates: start: 20220422, end: 20220422
  17. ITOPRIDE HYDROCHLORIDE [Interacting]
     Active Substance: ITOPRIDE HYDROCHLORIDE
     Indication: Product used for unknown indication
     Dosage: 3 UNITS150.0MG UNKNOWN
     Route: 065
     Dates: start: 20220422, end: 20220422

REACTIONS (8)
  - Suicide attempt [Recovered/Resolved]
  - Blood pressure decreased [Recovered/Resolved]
  - Intentional overdose [Recovered/Resolved]
  - Drug interaction [Recovered/Resolved]
  - Alcohol interaction [Recovered/Resolved]
  - Sluggishness [Recovered/Resolved]
  - Medication error [Recovered/Resolved]
  - Off label use [Recovered/Resolved]

NARRATIVE: CASE EVENT DATE: 20220422
